FAERS Safety Report 4676485-2 (Version None)
Quarter: 2005Q2

REPORT INFORMATION
  Report Type: 
  Country: None (occurrence: None)
  Receive Date: 20050525
  Receipt Date: 20050509
  Transmission Date: 20051028
  Serious: Yes (Hospitalization, Other)
  Sender: FDA-Public Use
  Company Number: 230007M05DEU

PATIENT
  Age: 52 Year
  Sex: Female

DRUGS (2)
  1. REBIF [Suspect]
     Indication: MULTIPLE SCLEROSIS
     Dates: start: 20030901, end: 20031020
  2. REBIF [Suspect]
     Indication: MULTIPLE SCLEROSIS
     Dates: start: 20031021, end: 20041101

REACTIONS (5)
  - DEPRESSION [None]
  - IMPULSE-CONTROL DISORDER [None]
  - MENTAL IMPAIRMENT [None]
  - OBSESSIVE THOUGHTS [None]
  - PHYSICAL ASSAULT [None]
